FAERS Safety Report 20268324 (Version 2)
Quarter: 2022Q1

REPORT INFORMATION
  Report Type: Spontaneous
  Country: TN (occurrence: TN)
  Receive Date: 20211231
  Receipt Date: 20220118
  Transmission Date: 20220424
  Serious: Yes (Hospitalization, Other)
  Sender: FDA-Public Use
  Company Number: None

PATIENT
  Age: 60 Year
  Sex: Female

DRUGS (7)
  1. ATORVASTATIN [Suspect]
     Active Substance: ATORVASTATIN
     Indication: Cerebrovascular accident
     Dosage: 10 MG, QD
     Route: 065
     Dates: start: 201910, end: 201910
  2. ATORVASTATIN [Suspect]
     Active Substance: ATORVASTATIN
     Indication: Hypercholesterolaemia
  3. ROSUVASTATIN [Suspect]
     Active Substance: ROSUVASTATIN
     Indication: Hypercholesterolaemia
     Dosage: 5 MG, QD
     Route: 065
     Dates: start: 202005
  4. FAMOTIDINE [Concomitant]
     Active Substance: FAMOTIDINE
     Indication: Cerebrovascular accident
     Dosage: 40 MG, QD
     Route: 065
     Dates: start: 201910
  5. FAMOTIDINE [Concomitant]
     Active Substance: FAMOTIDINE
     Indication: Hypercholesterolaemia
  6. LYSINE ACETYLSALICYLATE [Concomitant]
     Active Substance: ASPIRIN DL-LYSINE
     Indication: Cerebrovascular accident
     Dosage: 160 MG, QD
     Route: 065
     Dates: start: 201910
  7. LYSINE ACETYLSALICYLATE [Concomitant]
     Active Substance: ASPIRIN DL-LYSINE
     Indication: Dyslipidaemia

REACTIONS (3)
  - Angioedema [Recovered/Resolved]
  - Hereditary angioedema with C1 esterase inhibitor deficiency [Recovered/Resolved]
  - Type I hypersensitivity [Recovered/Resolved]

NARRATIVE: CASE EVENT DATE: 20191001
